FAERS Safety Report 12339867 (Version 4)
Quarter: 2017Q3

REPORT INFORMATION
  Report Type: Spontaneous
  Country: KR (occurrence: KR)
  Receive Date: 20160506
  Receipt Date: 20170719
  Transmission Date: 20171127
  Serious: Yes (Hospitalization, Other)
  Sender: FDA-Public Use
  Company Number: KR-009507513-1605KOR002277

PATIENT
  Age: 45 Year
  Sex: Female

DRUGS (21)
  1. ENAFON [Concomitant]
     Indication: NEUROLOGICAL SYMPTOM
     Dosage: 5 MG, QD
     Route: 048
     Dates: start: 20160125
  2. LASIX [Concomitant]
     Active Substance: FUROSEMIDE
     Indication: PROPHYLAXIS
     Dosage: 20 MG, ONCE
     Route: 042
     Dates: start: 20160204, end: 20160204
  3. DUROGESIC [Concomitant]
     Active Substance: FENTANYL
     Indication: PAIN PROPHYLAXIS
     Dosage: 1 DF, QD (STRENGTH: 12 MCG/H 5.25 CM2)
     Route: 050
     Dates: start: 20160205
  4. ALBIS [Concomitant]
     Active Substance: BISMUTH SUBCITRATE\RANITIDINE HYDROCHLORIDE\SUCRALFATE
     Indication: NEUROLOGICAL SYMPTOM
     Dosage: 1 TABLET, BID
     Route: 048
     Dates: start: 20160125
  5. MACPERAN [Concomitant]
     Active Substance: METOCLOPRAMIDE HYDROCHLORIDE
     Indication: PROPHYLAXIS OF NAUSEA AND VOMITING
     Dosage: 10 MG, QD
     Route: 042
     Dates: start: 20160204, end: 20160206
  6. PETHIDINE HCL JEIL [Concomitant]
     Indication: PAIN PROPHYLAXIS
     Dosage: 25 MG, ONCE
     Route: 042
     Dates: start: 20160209, end: 20160209
  7. EMEND (FOSAPREPITANT DIMEGLUMINE) [Suspect]
     Active Substance: FOSAPREPITANT DIMEGLUMINE
     Indication: PROPHYLAXIS OF NAUSEA AND VOMITING
     Dosage: 150 MG, ONCE
     Route: 042
     Dates: start: 20160204, end: 20160204
  8. DEXA (DEXAMETHASONE SODIUM PHOSPHATE) [Concomitant]
     Indication: PROPHYLAXIS OF NAUSEA AND VOMITING
     Dosage: 5 MG, QD
     Route: 042
     Dates: start: 20160204, end: 20160207
  9. MELOCAM [Concomitant]
     Indication: NEUROLOGICAL SYMPTOM
     Dosage: 7.5 MG, BID
     Route: 048
     Dates: start: 20160125
  10. CISPLATIN. [Concomitant]
     Active Substance: CISPLATIN
     Indication: LUNG NEOPLASM MALIGNANT
     Dosage: 107 MG, ONCE, CYCLE 1 (STRENGTH: 10MG/20ML)
     Route: 042
     Dates: start: 20160204, end: 20160204
  11. PARAMACET [Concomitant]
     Active Substance: ACETAMINOPHEN\TRAMADOL
     Indication: NEUROLOGICAL SYMPTOM
     Dosage: 1 DF, TID
     Route: 048
     Dates: start: 20160125
  12. TRIDOL (TRAMADOL HYDROCHLORIDE) [Concomitant]
     Indication: PAIN PROPHYLAXIS
     Dosage: 50 MG, ONCE
     Route: 042
     Dates: start: 20160203, end: 20160203
  13. PLAKON [Concomitant]
     Indication: PROPHYLAXIS OF NAUSEA AND VOMITING
     Dosage: 1.5 MG, QD
     Route: 042
     Dates: start: 20160204, end: 20160206
  14. POTASSIUM CHLORIDE DAIHAN [Concomitant]
     Indication: PROPHYLAXIS
     Dosage: 75 MG, BID
     Route: 042
     Dates: start: 20160204, end: 20160204
  15. IRCODON [Concomitant]
     Active Substance: OXYCODONE HYDROCHLORIDE
     Indication: PAIN PROPHYLAXIS
     Dosage: 5 MG, QID
     Route: 048
     Dates: start: 20160206
  16. CETIZAL [Concomitant]
     Indication: PROPHYLAXIS
     Dosage: 5 MG, QD
     Route: 048
     Dates: start: 20160212
  17. ALOXI [Concomitant]
     Active Substance: PALONOSETRON HYDROCHLORIDE
     Indication: PROPHYLAXIS OF NAUSEA AND VOMITING
     Dosage: 0.25 MG, ONCE
     Route: 042
     Dates: start: 20160204, end: 20160204
  18. MORPHINE HYDROCHLORIDE [Concomitant]
     Active Substance: MORPHINE HYDROCHLORIDE
     Indication: PAIN PROPHYLAXIS
     Dosage: 10 MG, QD
     Route: 042
     Dates: start: 20160204
  19. EPS [Concomitant]
     Indication: LUNG NEOPLASM MALIGNANT
     Dosage: 153 MG, QD, CYCLE 1
     Route: 042
     Dates: start: 20160204, end: 20160206
  20. MAGNESIUM SULFATE. [Concomitant]
     Active Substance: MAGNESIUM SULFATE
     Indication: PROPHYLAXIS
     Dosage: 1 G, BID
     Route: 042
     Dates: start: 20160204, end: 20160204
  21. MAROBIVEN S [Concomitant]
     Indication: PROPHYLAXIS
     Dosage: 2.2 ML, ONCE
     Route: 042
     Dates: start: 20160209, end: 20160209

REACTIONS (2)
  - Neutrophil count decreased [Recovered/Resolved]
  - Pain [Recovered/Resolved]

NARRATIVE: CASE EVENT DATE: 20160211
